FAERS Safety Report 22241369 (Version 3)
Quarter: 2023Q2

REPORT INFORMATION
  Report Type: Report from Study
  Country: CO (occurrence: CO)
  Receive Date: 20230421
  Receipt Date: 20230505
  Transmission Date: 20230721
  Serious: Yes (Death, Hospitalization)
  Sender: FDA-Public Use
  Company Number: CO-002147023-NVSC2023CO084823

PATIENT
  Sex: Male

DRUGS (1)
  1. ELTROMBOPAG OLAMINE [Suspect]
     Active Substance: ELTROMBOPAG OLAMINE
     Indication: Aplastic anaemia
     Dosage: 75 MG, QD
     Route: 048
     Dates: start: 202304

REACTIONS (11)
  - Cardio-respiratory arrest [Fatal]
  - Platelet count decreased [Not Recovered/Not Resolved]
  - General physical health deterioration [Unknown]
  - Decreased immune responsiveness [Unknown]
  - Haemoglobin decreased [Unknown]
  - Feeling abnormal [Unknown]
  - Malaise [Unknown]
  - Decreased appetite [Unknown]
  - Fall [Unknown]
  - Incontinence [Unknown]
  - Dizziness [Unknown]
